FAERS Safety Report 5333775-8 (Version None)
Quarter: 2007Q2

REPORT INFORMATION
  Report Type: 
  Country: None (occurrence: None)
  Receive Date: 20070524
  Receipt Date: 20070515
  Transmission Date: 20071010
  Serious: Yes (Hospitalization, Other)
  Sender: FDA-Public Use
  Company Number: US-ELI_LILLY_AND_COMPANY-US200705003875

PATIENT
  Age: 58 Year
  Sex: Male

DRUGS (1)
  1. HUMATROPE [Suspect]
     Dosage: UNK, UNKNOWN
     Dates: start: 20020101

REACTIONS (3)
  - BRAIN OEDEMA [None]
  - LOSS OF CONSCIOUSNESS [None]
  - VIRAL INFECTION [None]
